FAERS Safety Report 8477596-6 (Version None)
Quarter: 2012Q2

REPORT INFORMATION
  Report Type: 
  Country: None (occurrence: None)
  Receive Date: 20120626
  Receipt Date: 20120626
  Transmission Date: 20120825
  Serious: Yes (Other)
  Sender: FDA-Public Use
  Company Number: None

PATIENT
  Sex: Female
  Weight: 54.4316 kg

DRUGS (1)
  1. BUPROPRION HCL [Suspect]
     Indication: DEPRESSION

REACTIONS (3)
  - NAUSEA [None]
  - VOMITING [None]
  - HEADACHE [None]
